FAERS Safety Report 6882409-X (Version None)
Quarter: 2010Q3

REPORT INFORMATION
  Report Type: 
  Country: None (occurrence: None)
  Receive Date: 20100729
  Receipt Date: 20100722
  Transmission Date: 20110219
  Serious: Yes (Death, Hospitalization, Other)
  Sender: FDA-Public Use
  Company Number: AT-BAYER-201021037GPV

PATIENT
  Age: 61 Year
  Sex: Male

DRUGS (13)
  1. ALEMTUZUMAB [Suspect]
     Indication: T-CELL LYMPHOMA
     Dosage: A-CHOP-14, TREATMENT DAYS 1 AND 2 IN CYCLES 2 TO 6
     Route: 058
     Dates: start: 20100107, end: 20100108
  2. ALEMTUZUMAB [Suspect]
     Dosage: A-CHOP-14, TREATMENT DAYS 1 AND 2 IN CYCLES 2 TO 6
     Route: 058
     Dates: start: 20100222, end: 20100223
  3. PREDNISONE [Suspect]
     Indication: T-CELL LYMPHOMA
     Dosage: A-CHOP-14, TREATMENT DAYS 1-5  PER CYCLE
     Route: 048
     Dates: start: 20100222, end: 20100226
  4. PREDNISONE [Suspect]
     Dosage: A-CHOP-14, TREATMENT DAYS 1-5  PER CYCLE
     Route: 048
     Dates: start: 20100107, end: 20100111
  5. CYCLOPHOSPHAMIDE [Suspect]
     Indication: T-CELL LYMPHOMA
     Dosage: A-CHOP-14, TREATMENT DAY 1 PER CYCLE
     Route: 042
     Dates: start: 20100107, end: 20100107
  6. CYCLOPHOSPHAMIDE [Suspect]
     Dosage: A-CHOP-14, TREATMENT DAY 1 PER CYCLE
     Route: 042
     Dates: start: 20100222, end: 20100222
  7. DOXORUBICIN HCL [Suspect]
     Indication: T-CELL LYMPHOMA
     Dosage: A-CHOP-14, TREATMENT DAY 1 PER CYCLE
     Route: 042
     Dates: start: 20100107, end: 20100107
  8. DOXORUBICIN HCL [Suspect]
     Dosage: A-CHOP-14, TREATMENT DAY 1 PER CYCLE
     Route: 042
     Dates: start: 20100222, end: 20100222
  9. VINCRISTINE [Suspect]
     Indication: T-CELL LYMPHOMA
     Dosage: A-CHOP-14, TREATMENT DAY 1 PER CYCLE
     Route: 042
     Dates: start: 20100107, end: 20100107
  10. VINCRISTINE [Suspect]
     Dosage: A-CHOP-14, TREATMENT DAY 1 PER CYCLE
     Route: 042
     Dates: start: 20100222, end: 20100222
  11. PEGFILGRASTIM [Suspect]
     Indication: T-CELL LYMPHOMA
     Route: 058
  12. PEGFILGRASTIM [Suspect]
     Route: 058
     Dates: start: 20100301, end: 20100301
  13. POSACONAZOLE [Concomitant]
     Indication: PROPHYLAXIS

REACTIONS (7)
  - BRONCHOPNEUMONIA [None]
  - CANDIDA PNEUMONIA [None]
  - FEBRILE NEUTROPENIA [None]
  - PSEUDOMONAL SEPSIS [None]
  - RESPIRATORY FAILURE [None]
  - SEPTIC SHOCK [None]
  - TRACHEITIS [None]
